FAERS Safety Report 12204078 (Version 2)
Quarter: 2016Q1

REPORT INFORMATION
  Report Type: Spontaneous
  Country: US (occurrence: US)
  Receive Date: 20160323
  Receipt Date: 20160324
  Transmission Date: 20160526
  Serious: No
  Sender: FDA-Public Use
  Company Number: US-PFIZER INC-2016135265

PATIENT
  Age: 9 Year
  Sex: Male
  Weight: 27 kg

DRUGS (1)
  1. QUILLIVANT XR [Suspect]
     Active Substance: METHYLPHENIDATE HYDROCHLORIDE
     Indication: ATTENTION DEFICIT/HYPERACTIVITY DISORDER
     Dosage: 2 MG IN THE MORNING AND ANOTHER 2 MG DOSE AT ^11^
     Dates: start: 201412

REACTIONS (1)
  - Drug ineffective [Unknown]
